FAERS Safety Report 15276737 (Version 1)
Quarter: 2018Q3

REPORT INFORMATION
  Report Type: Spontaneous
  Country: US (occurrence: US)
  Receive Date: 20180814
  Receipt Date: 20180814
  Transmission Date: 20181010
  Serious: Yes (Hospitalization, Other)
  Sender: FDA-Public Use
  Company Number: US-NOVOPROD-615219

PATIENT
  Age: 59 Year
  Sex: Female

DRUGS (1)
  1. NOVOLOG [Suspect]
     Active Substance: INSULIN ASPART
     Indication: TYPE 2 DIABETES MELLITUS
     Dosage: 15 U, BID IN THE AM AND AT LUNCH
     Route: 058
     Dates: start: 2018

REACTIONS (4)
  - Blood glucose decreased [Recovered/Resolved]
  - Arthritis [Unknown]
  - Sepsis [Unknown]
  - Blood glucose fluctuation [Unknown]

NARRATIVE: CASE EVENT DATE: 2018
